FAERS Safety Report 10701081 (Version 1)
Quarter: 2014Q4

REPORT INFORMATION
  Report Type: Spontaneous
  Country: US (occurrence: None)
  Receive Date: 20141229
  Receipt Date: 20141229
  Transmission Date: 20150529
  Serious: Yes (Hospitalization, Other)
  Sender: FDA-Public Use
  Company Number: 2014AP003267

PATIENT
  Age: 66 Year
  Sex: Female

DRUGS (16)
  1. FUROSEMIDE. [Concomitant]
     Active Substance: FUROSEMIDE
  2. ALPRAZOLAM. [Concomitant]
     Active Substance: ALPRAZOLAM
  3. TIGECYCLINE [Concomitant]
     Active Substance: TIGECYCLINE
  4. METHYLPREDISOLONE [Suspect]
     Active Substance: METHYLPREDNISOLONE
     Indication: PRODUCT USED FOR UNKNOWN INDICATION
     Dosage: SINGLE
     Route: 042
  5. TIOTROPIUM BROMIDE [Concomitant]
     Active Substance: TIOTROPIUM BROMIDE
  6. HYDROCODONE, PARACETAMOL [Concomitant]
  7. FOLIC ACID. [Concomitant]
     Active Substance: FOLIC ACID
  8. OMEPRAZOLE. [Concomitant]
     Active Substance: OMEPRAZOLE
  9. AZTREONAM. [Concomitant]
     Active Substance: AZTREONAM
  10. PREDNISONE. [Concomitant]
     Active Substance: PREDNISONE
  11. CONJUGATED ESTROGENS (ESTROGENS CONJUGATED) [Concomitant]
  12. VANCOMYCIN [Concomitant]
     Active Substance: VANCOMYCIN
  13. METHOTREXATE [Concomitant]
     Active Substance: METHOTREXATE
  14. FLUCONAZOLE. [Suspect]
     Active Substance: FLUCONAZOLE
     Indication: SUPERINFECTION FUNGAL
     Route: 048
  15. CARISOPRODOL. [Concomitant]
     Active Substance: CARISOPRODOL
  16. SUMATRIPTAN. [Concomitant]
     Active Substance: SUMATRIPTAN

REACTIONS (2)
  - Thrombocytopenia [None]
  - Agranulocytosis [None]
